FAERS Safety Report 10697793 (Version 2)
Quarter: 2015Q1

REPORT INFORMATION
  Report Type: Spontaneous
  Country: US (occurrence: US)
  Receive Date: 20150108
  Receipt Date: 20150108
  Transmission Date: 20150721
  Serious: Yes (Other)
  Sender: FDA-Public Use
  Company Number: US-BRACCO-011397

PATIENT
  Age: 31 Year
  Sex: Female
  Weight: 64 kg

DRUGS (6)
  1. PYRIDOXINE [Concomitant]
     Active Substance: PYRIDOXINE
  2. ISONIAZID. [Concomitant]
     Active Substance: ISONIAZID
  3. MULTIHANCE [Suspect]
     Active Substance: GADOBENATE DIMEGLUMINE
     Indication: NUCLEAR MAGNETIC RESONANCE IMAGING BRAIN
     Route: 042
     Dates: start: 20141015, end: 20141015
  4. LORAZEPAM. [Concomitant]
     Active Substance: LORAZEPAM
  5. HEPARIN [Concomitant]
     Active Substance: HEPARIN SODIUM
  6. DILANTIN [Concomitant]
     Active Substance: PHENYTOIN

REACTIONS (2)
  - Exposure during pregnancy [Unknown]
  - Abortion spontaneous [Unknown]

NARRATIVE: CASE EVENT DATE: 20141015
